FAERS Safety Report 9235974 (Version 1)
Quarter: 2013Q2

REPORT INFORMATION
  Report Type: Spontaneous
  Country: US (occurrence: US)
  Receive Date: 20130417
  Receipt Date: 20130417
  Transmission Date: 20140414
  Serious: Yes (Other)
  Sender: FDA-Public Use
  Company Number: US-BAUSCH-BL-2013-002031

PATIENT
  Sex: Female

DRUGS (2)
  1. SULFACETAMIDE SODIUM OPHTHALMIC SOLUTION USP 10% [Suspect]
     Indication: CONJUNCTIVITIS
     Route: 047
     Dates: start: 20110327
  2. POLYMYXIN B SULFATE AND TRIMETHOPRIM OPHTHALMIC SOLUTION USP [Suspect]
     Indication: CONJUNCTIVITIS
     Route: 047
     Dates: start: 20110327

REACTIONS (3)
  - Stevens-Johnson syndrome [Not Recovered/Not Resolved]
  - Erythema multiforme [Not Recovered/Not Resolved]
  - Corneal lesion [None]
